FAERS Safety Report 23516358 (Version 1)
Quarter: 2024Q1

REPORT INFORMATION
  Report Type: Spontaneous
  Country: CN (occurrence: CN)
  Receive Date: 20240213
  Receipt Date: 20240213
  Transmission Date: 20240410
  Serious: Yes (Hospitalization, Other)
  Sender: FDA-Public Use
  Company Number: None

PATIENT
  Age: 93 Year
  Sex: Male

DRUGS (6)
  1. LINEZOLID [Suspect]
     Active Substance: LINEZOLID
     Indication: Pneumonia
     Dosage: 600 MILLIGRAM, QD
     Route: 065
  2. LINEZOLID [Suspect]
     Active Substance: LINEZOLID
     Indication: Tuberculous pleurisy
     Dosage: 0.6 GRAM, BID (EVERY 12 HOUR) (600 MG/DAY)
     Route: 042
  3. IMIPENEM [Concomitant]
     Active Substance: IMIPENEM
     Indication: Pneumonia
     Dosage: UNK
     Route: 065
  4. INSULIN ASPART [Concomitant]
     Active Substance: INSULIN ASPART
     Indication: Type 2 diabetes mellitus
     Dosage: UNK
     Route: 065
  5. ISONIAZID [Concomitant]
     Active Substance: ISONIAZID
     Indication: Tuberculous pleurisy
     Dosage: UNK
     Route: 065
  6. LEVOFLOXACIN [Concomitant]
     Active Substance: LEVOFLOXACIN
     Indication: Tuberculous pleurisy
     Dosage: UNK
     Route: 065

REACTIONS (4)
  - Anaemia [Recovering/Resolving]
  - Hypoglycaemia [Recovering/Resolving]
  - Anaemia [Recovering/Resolving]
  - Hypoglycaemia [Recovering/Resolving]

NARRATIVE: CASE EVENT DATE: 20210101
